FAERS Safety Report 7475279-2 (Version None)
Quarter: 2011Q2

REPORT INFORMATION
  Report Type: 
  Country: None (occurrence: None)
  Receive Date: 20110505
  Receipt Date: 20110426
  Transmission Date: 20111010
  Serious: Yes (Other)
  Sender: FDA-Public Use
  Company Number: 1000020256

PATIENT

DRUGS (9)
  1. DICLECTIN [Suspect]
     Dosage: TRANSPLACENTAL
     Route: 064
  2. TRAMADOL HYDROCHLORIDE/ACETAMINOPHEN [Suspect]
     Dosage: TRANSPLACENTAL
     Route: 064
  3. LIDOCAINE [Suspect]
     Dosage: TRANSPLACENTAL
     Route: 064
  4. CLOMID [Suspect]
     Dosage: TRANSPLACENTAL
     Route: 064
  5. OXYCONTIN [Suspect]
     Dosage: TRANSPLACENTAL
     Route: 064
  6. NALOXONE [Suspect]
     Dosage: TRANSPLACENTAL
     Route: 064
  7. CELEXA [Suspect]
  8. FLEXERIL [Suspect]
     Dosage: TRANSPLACENTAL
     Route: 064
  9. IMOVANE (ZOPICLONE) (TABLETS) [Suspect]
     Dosage: TRANSPLACENTAL
     Route: 064

REACTIONS (2)
  - MATERNAL DRUGS AFFECTING FOETUS [None]
  - DRUG WITHDRAWAL SYNDROME NEONATAL [None]
